FAERS Safety Report 17702139 (Version 1)
Quarter: 2020Q2

REPORT INFORMATION
  Report Type: Spontaneous
  Country: US (occurrence: US)
  Receive Date: 20200423
  Receipt Date: 20200423
  Transmission Date: 20200714
  Serious: No
  Sender: FDA-Public Use
  Company Number: US-ABBVIE-20K-163-3327813-00

PATIENT
  Sex: Female

DRUGS (2)
  1. ORILISSA [Suspect]
     Active Substance: ELAGOLIX SODIUM
     Indication: ENDOMETRIOSIS
     Route: 048
  2. LUPRON [Suspect]
     Active Substance: LEUPROLIDE ACETATE
     Indication: ENDOMETRIOSIS
     Route: 065

REACTIONS (11)
  - Transient ischaemic attack [Unknown]
  - Discomfort [Unknown]
  - Haemorrhage [Unknown]
  - Renal pain [Unknown]
  - Pelvic pain [Unknown]
  - Muscle contracture [Unknown]
  - Haemorrhoids [Unknown]
  - Drug ineffective [Unknown]
  - Injury [Unknown]
  - Abdominal pain [Unknown]
  - Endometriosis [Unknown]
